FAERS Safety Report 11294619 (Version 1)
Quarter: 2015Q2

REPORT INFORMATION
  Report Type: Spontaneous
  Country: US (occurrence: None)
  Receive Date: 20150623
  Receipt Date: 20150623
  Transmission Date: 20150821
  Serious: Yes (Other)
  Sender: FDA-Public Use
  Company Number: RB-66604-2014

PATIENT
  Sex: Male

DRUGS (1)
  1. GUAIFENESIN W/DEXTROMETHORPHAN 1200 MG (RECKITT BENCKISER) [Suspect]
     Active Substance: DEXTROMETHORPHAN\GUAIFENESIN
     Indication: NASOPHARYNGITIS
     Dosage: 1X/12 HOURS, TOTAL USED 4 TABLETS: LAST USED THE PRODUCT ON 03-JUN-2014
     Route: 048
     Dates: start: 20140601, end: 20140603

REACTIONS (5)
  - Confusional state [None]
  - Fatigue [None]
  - Dizziness [None]
  - Tremor [None]
  - Headache [None]
